FAERS Safety Report 5233354-7 (Version None)
Quarter: 2007Q1

REPORT INFORMATION
  Report Type: 
  Country: None (occurrence: None)
  Receive Date: 20070206
  Receipt Date: 20070206
  Transmission Date: 20070707
  Serious: No
  Sender: FDA-Public Use
  Company Number: None

PATIENT
  Age: 63 Year
  Sex: Male
  Weight: 127.0072 kg

DRUGS (1)
  1. LEVAQUIN [Suspect]
     Indication: SINUSITIS
     Dosage: 1 TABLET    1 X DAY
     Dates: start: 20070111, end: 20070121

REACTIONS (4)
  - ARTHRALGIA [None]
  - DYSSTASIA [None]
  - HYPOAESTHESIA [None]
  - PAIN IN EXTREMITY [None]
